FAERS Safety Report 25535899 (Version 1)
Quarter: 2025Q3

REPORT INFORMATION
  Report Type: Spontaneous
  Country: EU (occurrence: EU)
  Receive Date: 20250709
  Receipt Date: 20250709
  Transmission Date: 20251020
  Serious: Yes (Other)
  Sender: MERCK SHARP & DOHME LLC
  Company Number: EU-009507513-2302833

PATIENT
  Age: 49 Year
  Sex: Female

DRUGS (4)
  1. PEMBROLIZUMAB [Suspect]
     Active Substance: PEMBROLIZUMAB
     Indication: Breast cancer
     Dates: start: 20230712, end: 20231108
  2. GEMCITABINE [Suspect]
     Active Substance: GEMCITABINE
     Indication: Breast cancer
     Dates: start: 20230712, end: 20231108
  3. CARBOPLATIN [Suspect]
     Active Substance: CARBOPLATIN
     Indication: Breast cancer
     Dates: start: 20230712, end: 20231108
  4. BISOPROLOL [Concomitant]
     Active Substance: BISOPROLOL

REACTIONS (3)
  - Thrombocytopenia [Unknown]
  - Neutropenia [Unknown]
  - Anaemia [Unknown]
